FAERS Safety Report 17211674 (Version 1)
Quarter: 2019Q4

REPORT INFORMATION
  Report Type: Spontaneous
  Country: GB (occurrence: GB)
  Receive Date: 20191229
  Receipt Date: 20191229
  Transmission Date: 20200122
  Serious: Yes (Other)
  Sender: FDA-Public Use
  Company Number: GB-TEVA-2019-GB-1158666

PATIENT
  Age: 69 Year
  Sex: Male
  Weight: 86 kg

DRUGS (11)
  1. ATORVASTATIN [Concomitant]
     Active Substance: ATORVASTATIN
     Dosage: 1 DOSAGE FORMS PER DAY
     Dates: start: 20190529
  2. ULTIBRO BREEZHALER [Concomitant]
     Active Substance: GLYCOPYRRONIUM\INDACATEROL
     Dosage: INHALE THE CONTENTS OF ONE CAPSULE
     Route: 055
     Dates: start: 20191121
  3. FOLIC ACID. [Concomitant]
     Active Substance: FOLIC ACID
     Dosage: 1 DOSAGE FORMS PER DAY
     Dates: start: 20190906
  4. LOSARTAN. [Suspect]
     Active Substance: LOSARTAN
     Dosage: 12.5 MG PER DAY
     Dates: start: 20190529, end: 20191105
  5. AMLODIPINE [Concomitant]
     Active Substance: AMLODIPINE BESYLATE
     Dosage: 1 DOSAGE FORMS PER DAY
     Dates: start: 20190529
  6. OMEPRAZOLE. [Concomitant]
     Active Substance: OMEPRAZOLE
     Dosage: 1 DOSAGE FORMS PER DAY
     Dates: start: 20190529
  7. ALLOPURINOL. [Concomitant]
     Active Substance: ALLOPURINOL
     Indication: PROPHYLAXIS
     Dosage: 1 DOSAGE FORMS PER DAY
     Dates: start: 20190529
  8. EPIPEN [Concomitant]
     Active Substance: EPINEPHRINE
     Indication: ANAPHYLACTIC REACTION
     Dosage: USE AS DIRECTED IN EMERGENCY ONLY FOR ANAPHYLAXIS
     Dates: start: 20190708
  9. BRALTUS [Concomitant]
     Active Substance: TIOTROPIUM BROMIDE
     Dosage: INHALE THE CONTENTS OF ONE CAPSULE VIA THE ZOND...
     Route: 055
     Dates: start: 20190704
  10. BETNOVATE [Concomitant]
     Active Substance: BETAMETHASONE
     Dosage: APPLY THINLY 1-2 TIMES A DAY AS DIRECTED
     Dates: start: 20191121
  11. SALBUTAMOL [Concomitant]
     Active Substance: ALBUTEROL
     Dosage: INHALE ONE TO TWO PUFFS UP TO FOUR TIMES A DAY
     Route: 055
     Dates: start: 20190809

REACTIONS (1)
  - Acute kidney injury [Unknown]
